FAERS Safety Report 10543318 (Version 1)
Quarter: 2014Q4

REPORT INFORMATION
  Report Type: Spontaneous
  Country: US (occurrence: None)
  Receive Date: 20141010
  Receipt Date: 20141010
  Transmission Date: 20150529
  Serious: Yes (Other)
  Sender: FDA-Public Use
  Company Number: 163-POMAL-14030902

PATIENT
  Age: 78 Year
  Sex: Female

DRUGS (8)
  1. PAIN RELEIVER (PARACETAMOL) (UNKNOWN) [Concomitant]
  2. DECADRON [Concomitant]
     Active Substance: DEXAMETHASONE
  3. POMALYST [Suspect]
     Active Substance: POMALIDOMIDE
     Indication: PLASMA CELL MYELOMA
     Dosage: 4 MG, 21 IN 28 D, PO
     Route: 048
     Dates: start: 20140206
  4. ALEVE (NAPROXEN SODIUM) (UNKNOWN) [Concomitant]
  5. ASPIRIN ( ACETYLSALICYLIC ACID) (UNKNOWN) [Concomitant]
  6. POTASSIUM (POTASSIUM) (UNKNOWN) [Concomitant]
  7. SYNTHROID (LEVOTHYROXINE SODIUM) (UNKNOWN) [Concomitant]
  8. AMLODIPINE BESYLATE (AMLODIPINE BESILATE) (UNKNOWN) [Concomitant]

REACTIONS (2)
  - Neutrophil count decreased [None]
  - White blood cell count decreased [None]

NARRATIVE: CASE EVENT DATE: 20140326
